FAERS Safety Report 18772750 (Version 6)
Quarter: 2022Q3

REPORT INFORMATION
  Report Type: Spontaneous
  Country: US (occurrence: US)
  Receive Date: 20210122
  Receipt Date: 20220805
  Transmission Date: 20221027
  Serious: No
  Sender: FDA-Public Use
  Company Number: US-TAKEDA-2021TUS003088

PATIENT
  Age: 73 Year
  Sex: Male

DRUGS (3)
  1. NINLARO [Suspect]
     Active Substance: IXAZOMIB CITRATE
     Indication: Essential thrombocythaemia
     Dosage: 4 MILLIGRAM
     Route: 048
     Dates: start: 20201124
  2. NINLARO [Suspect]
     Active Substance: IXAZOMIB CITRATE
     Indication: Polycythaemia vera
  3. NINLARO [Suspect]
     Active Substance: IXAZOMIB CITRATE
     Indication: Amyloidosis

REACTIONS (4)
  - Blood pressure decreased [Unknown]
  - Fatigue [Unknown]
  - Diarrhoea [Not Recovered/Not Resolved]
  - Off label use [Unknown]

NARRATIVE: CASE EVENT DATE: 20201124
